FAERS Safety Report 7538330-7 (Version None)
Quarter: 2011Q2

REPORT INFORMATION
  Report Type: 
  Country: None (occurrence: None)
  Receive Date: 20110609
  Receipt Date: 20070309
  Transmission Date: 20111010
  Serious: Yes (Hospitalization, Other)
  Sender: FDA-Public Use
  Company Number: PHFR2007GB00857

PATIENT
  Sex: Female

DRUGS (5)
  1. CLOZAPINE [Suspect]
     Indication: SCHIZOPHRENIA
     Dosage: 900 MG, DAILY
     Route: 048
     Dates: start: 19980127
  2. LEVOTHYROXINE SODIUM [Concomitant]
     Dosage: 50 UG, QD
     Route: 048
  3. AMISULPRIDE [Concomitant]
     Dosage: 400 MG, DAILY
     Route: 048
  4. VALPROIC ACID [Concomitant]
     Dosage: 750 MG, DAILY
     Route: 048
  5. LITHIUM CARBONATE [Concomitant]
     Dosage: 800 MG, QD
     Route: 048

REACTIONS (2)
  - ARTHRITIS BACTERIAL [None]
  - SEPSIS [None]
